FAERS Safety Report 6706187-X (Version None)
Quarter: 2010Q2

REPORT INFORMATION
  Report Type: 
  Country: None (occurrence: None)
  Receive Date: 20100430
  Receipt Date: 20100430
  Transmission Date: 20101027
  Serious: Yes (Hospitalization)
  Sender: FDA-Public Use
  Company Number: None

PATIENT
  Sex: Female
  Weight: 20.4 kg

DRUGS (5)
  1. CYTARABINE [Suspect]
     Dosage: 70 MG
  2. DEXAMETHASONE [Suspect]
     Dosage: 67.5 MG
  3. METHOTREXATE [Suspect]
     Dosage: 12 MG
  4. PEG-L-ASPARIGINASE (PEGASPARAGASE, ONCOSPAR) [Suspect]
     Dosage: 1875 IU
  5. VINCRISTINE SULFATE [Suspect]
     Dosage: 3.3 MG

REACTIONS (12)
  - ABDOMINAL PAIN [None]
  - BLOOD CREATININE INCREASED [None]
  - BLOOD CULTURE POSITIVE [None]
  - CARDIO-RESPIRATORY ARREST [None]
  - CHILLS [None]
  - FAECAL VOLUME INCREASED [None]
  - HYPOTENSION [None]
  - IRRITABILITY [None]
  - PSEUDOMONAS INFECTION [None]
  - PULSE PRESSURE INCREASED [None]
  - RASH MACULAR [None]
  - TACHYCARDIA [None]
